FAERS Safety Report 8296796-1 (Version None)
Quarter: 2012Q2

REPORT INFORMATION
  Report Type: 
  Country: None (occurrence: None)
  Receive Date: 20120419
  Receipt Date: 20120203
  Transmission Date: 20120825
  Serious: No
  Sender: FDA-Public Use
  Company Number: US-ASTRAZENECA-2012SE07581

PATIENT
  Age: 74 Year
  Sex: Female
  Weight: 57.6 kg

DRUGS (17)
  1. ZIAC [Concomitant]
     Indication: BLOOD PRESSURE ABNORMAL
  2. LUTEIN [Concomitant]
     Indication: DRY EYE
  3. NEXIUM [Suspect]
     Indication: DYSPEPSIA
     Route: 048
  4. ATACAND [Concomitant]
  5. RED YEAST RICE [Concomitant]
  6. FLAXSEED OIL [Concomitant]
  7. NEXIUM [Suspect]
     Indication: GASTROOESOPHAGEAL REFLUX DISEASE
     Route: 048
  8. NEXIUM [Suspect]
     Indication: GASTROINTESTINAL EROSION
     Route: 048
  9. GLUCOSAMINE [Concomitant]
     Indication: ARTHRITIS
  10. LUTEIN [Concomitant]
     Indication: HAIR TEXTURE ABNORMAL
  11. LUTEIN [Concomitant]
     Indication: DRY SKIN
  12. FISH OIL [Concomitant]
  13. ASPIRIN [Concomitant]
  14. FOSAMAX [Concomitant]
  15. COQ10 [Concomitant]
  16. LUTEIN [Concomitant]
     Indication: DRY MOUTH
  17. CALCIUM + VIT. D [Concomitant]

REACTIONS (9)
  - OFF LABEL USE [None]
  - MUSCULOSKELETAL STIFFNESS [None]
  - COLD SWEAT [None]
  - DYSPNOEA [None]
  - ERYTHEMA [None]
  - CARDIAC FLUTTER [None]
  - ASTHENIA [None]
  - SWEAT GLAND DISORDER [None]
  - NAUSEA [None]
